FAERS Safety Report 17668956 (Version 3)
Quarter: 2020Q2

REPORT INFORMATION
  Report Type: Report from Study
  Country: US (occurrence: US)
  Receive Date: 20200415
  Receipt Date: 20200522
  Transmission Date: 20200713
  Serious: Yes (Hospitalization)
  Sender: FDA-Public Use
  Company Number: US-GLAXOSMITHKLINE-US2020GSK063654

PATIENT
  Age: 60 Year
  Sex: Female
  Weight: 76 kg

DRUGS (2)
  1. LENVIMA [Suspect]
     Active Substance: LENVATINIB
     Indication: PRODUCT USED FOR UNKNOWN INDICATION
     Dosage: 20 MG, QD
  2. ROLAPITANT HYDROCHLORIDE [Suspect]
     Active Substance: ROLAPITANT
     Indication: UTERINE CANCER
     Dosage: 2 DF, Z (90 MG, TAKE 2 TABLETS BY MOUTH EVERY 3 WEEKS PRIOR TO CHEMO)
     Route: 048
     Dates: start: 202004

REACTIONS (7)
  - Pain [Unknown]
  - Anaemia [Unknown]
  - Hypertension [Recovered/Resolved]
  - Pyrexia [Unknown]
  - Nausea [Recovering/Resolving]
  - Influenza like illness [Unknown]
  - Chills [Unknown]

NARRATIVE: CASE EVENT DATE: 202004
